FAERS Safety Report 9571928 (Version 9)
Quarter: 2015Q2

REPORT INFORMATION
  Report Type: Spontaneous
  Country: CA (occurrence: CA)
  Receive Date: 20131001
  Receipt Date: 20150616
  Transmission Date: 20150821
  Serious: Yes (Hospitalization)
  Sender: FDA-Public Use
  Company Number: CA-ROCHE-1282962

PATIENT
  Age: 55 Year
  Sex: Female

DRUGS (8)
  1. XOLAIR [Suspect]
     Active Substance: OMALIZUMAB
     Route: 058
     Dates: start: 20130925
  2. XOLAIR [Suspect]
     Active Substance: OMALIZUMAB
     Indication: ASTHMA
     Route: 058
     Dates: start: 20130828
  3. XOLAIR [Suspect]
     Active Substance: OMALIZUMAB
     Route: 058
     Dates: start: 20150114
  4. XOLAIR [Suspect]
     Active Substance: OMALIZUMAB
     Route: 058
     Dates: start: 20150603
  5. ADVAIR HFA [Concomitant]
     Active Substance: FLUTICASONE PROPIONATE\SALMETEROL XINAFOATE
     Route: 065
  6. XOLAIR [Suspect]
     Active Substance: OMALIZUMAB
     Route: 058
     Dates: start: 20131023
  7. SINGULAIR [Concomitant]
     Active Substance: MONTELUKAST SODIUM
     Route: 065
  8. VENTOLINE [Concomitant]
     Active Substance: ALBUTEROL
     Dosage: PILL
     Route: 065

REACTIONS (15)
  - Blood pressure decreased [Unknown]
  - Heart rate irregular [Unknown]
  - Sinus disorder [Recovering/Resolving]
  - Rhinorrhoea [Unknown]
  - Pneumonia [Not Recovered/Not Resolved]
  - Nasal polyps [Unknown]
  - Rib fracture [Unknown]
  - Cough [Unknown]
  - Asthma [Recovering/Resolving]
  - Influenza [Recovered/Resolved]
  - Dyspnoea exertional [Unknown]
  - Injection site pain [Unknown]
  - Respiratory disorder [Unknown]
  - Malaise [Unknown]
  - Nasopharyngitis [Unknown]

NARRATIVE: CASE EVENT DATE: 20130912
